FAERS Safety Report 18103353 (Version 3)
Quarter: 2020Q3

REPORT INFORMATION
  Report Type: Spontaneous
  Country: US (occurrence: US)
  Receive Date: 20200803
  Receipt Date: 20200930
  Transmission Date: 20201103
  Serious: No
  Sender: FDA-Public Use
  Company Number: US-PFIZER INC-2020291551

PATIENT
  Age: 66 Year
  Sex: Female

DRUGS (1)
  1. IBRANCE [Suspect]
     Active Substance: PALBOCICLIB
     Indication: BREAST CANCER FEMALE
     Dosage: 125 MG, CYCLIC, (125MG X 21D OF 28D CYCLE)
     Dates: start: 20200326

REACTIONS (3)
  - Flatulence [Unknown]
  - Hot flush [Not Recovered/Not Resolved]
  - Diarrhoea [Unknown]
